FAERS Safety Report 7746847-5 (Version None)
Quarter: 2011Q3

REPORT INFORMATION
  Report Type: 
  Country: None (occurrence: None)
  Receive Date: 20110913
  Receipt Date: 20110830
  Transmission Date: 20111222
  Serious: Yes (Hospitalization)
  Sender: FDA-Public Use
  Company Number: JP-AMGEN-US352814

PATIENT
  Age: 58 Year
  Sex: Female
  Weight: 57 kg

DRUGS (15)
  1. METHOTREXATE [Suspect]
     Dosage: 7.5 MG, WEEKLY
     Route: 048
  2. ETANERCEPT [Suspect]
     Indication: RHEUMATOID ARTHRITIS
     Dosage: 50 MG, 1 TIME PER WEEK
     Route: 058
     Dates: start: 20080701, end: 20090403
  3. KETOPROFEN [Concomitant]
     Dosage: UNK
     Route: 061
  4. ISONIAZID [Concomitant]
     Dosage: UNK
     Route: 048
     Dates: start: 20080612, end: 20081201
  5. OMEPRAZOLE [Concomitant]
     Dosage: UNK
     Route: 048
  6. ETANERCEPT [Suspect]
     Dosage: UNK
     Dates: start: 20090801
  7. DICLOFENAC SODIUM [Concomitant]
     Dosage: UNK
     Route: 054
  8. FOLIC ACID [Concomitant]
     Dosage: UNK
     Route: 048
     Dates: end: 20090402
  9. PREDNISOLONE [Concomitant]
     Dosage: 20 MG/DAY
  10. PREDNISOLONE [Concomitant]
     Dosage: 30 MG/DAY
     Dates: start: 20090416
  11. MUCOSTA [Concomitant]
     Dosage: UNK
     Route: 048
  12. METHOTREXATE [Suspect]
     Indication: RHEUMATOID ARTHRITIS
     Dosage: 2.5 MG, UNK
     Dates: start: 20090402
  13. DICLOFENAC SODIUM [Concomitant]
     Dosage: UNK
  14. PYDOXAL [Concomitant]
     Dosage: UNK
     Route: 048
     Dates: start: 20080612, end: 20081201
  15. PREDNISOLONE [Concomitant]
     Dosage: 5 MG/DAY
     Route: 048

REACTIONS (1)
  - INTERSTITIAL LUNG DISEASE [None]
